FAERS Safety Report 19472054 (Version 2)
Quarter: 2021Q3

REPORT INFORMATION
  Report Type: Spontaneous
  Country: DE (occurrence: DE)
  Receive Date: 20210629
  Receipt Date: 20210805
  Transmission Date: 20211014
  Serious: Yes (Other)
  Sender: FDA-Public Use
  Company Number: DE-SUN PHARMACEUTICAL INDUSTRIES LTD-2021RR-302362

PATIENT
  Age: 26 Year
  Sex: Male
  Weight: 83 kg

DRUGS (4)
  1. AMLODIPINE [Suspect]
     Active Substance: AMLODIPINE BESYLATE
     Indication: PRODUCT USED FOR UNKNOWN INDICATION
     Dosage: 700 MILLIGRAM, UNK
     Route: 048
  2. RAMIPRIL. [Suspect]
     Active Substance: RAMIPRIL
     Indication: PRODUCT USED FOR UNKNOWN INDICATION
     Dosage: 700 MILLIGRAM, UNK
     Route: 065
  3. DOBUTAMINE?CARINOPHARM 250 MG / 50 ML INFUSIONSLOSUNG CARINOPHARM GMBH [Suspect]
     Active Substance: DOBUTAMINE HYDROCHLORIDE
     Indication: VASCULAR RESISTANCE SYSTEMIC
     Dosage: 3.07 MICROGRAM/KILOGRAM/MIN
     Route: 065
  4. ARTERENOL 1 MG/ML (1 ML ODER 25 ML) CHEPLAPHARM ARZNEIMITTEL GMBH [Suspect]
     Active Substance: NOREPINEPHRINE HYDROCHLORIDE, (+/-)-
     Indication: VASCULAR RESISTANCE SYSTEMIC
     Dosage: 0.002?2.36 UG/KG/MIN
     Route: 065

REACTIONS (2)
  - Drug ineffective [Unknown]
  - Suicide attempt [Unknown]
